FAERS Safety Report 7734702-6 (Version None)
Quarter: 2011Q3

REPORT INFORMATION
  Report Type: 
  Country: None (occurrence: None)
  Receive Date: 20110907
  Receipt Date: 20110830
  Transmission Date: 20111222
  Serious: Yes (Hospitalization, Other)
  Sender: FDA-Public Use
  Company Number: US-ACTELION-A-US2008-19717

PATIENT

DRUGS (4)
  1. ADCIRCA [Concomitant]
  2. OXYGEN [Concomitant]
  3. CALCIUM CHANNEL BLOCKERS [Concomitant]
  4. TRACLEER [Suspect]
     Indication: PULMONARY ARTERIAL HYPERTENSION
     Dosage: UNK
     Route: 048
     Dates: start: 20051031

REACTIONS (7)
  - PULMONARY MASS [None]
  - BRONCHITIS [None]
  - CHRONIC OBSTRUCTIVE PULMONARY DISEASE [None]
  - PNEUMONIA [None]
  - ANAEMIA [None]
  - OBSTRUCTIVE AIRWAYS DISORDER [None]
  - MACULAR DEGENERATION [None]
